FAERS Safety Report 11991768 (Version 1)
Quarter: 2016Q1

REPORT INFORMATION
  Report Type: Spontaneous
  Country: US (occurrence: None)
  Receive Date: 20160202
  Receipt Date: 20160202
  Transmission Date: 20160526
  Serious: Yes (Other)
  Sender: FDA-Public Use
  Company Number: None

PATIENT
  Age: 33 Year
  Sex: Female

DRUGS (1)
  1. HEAD AND SHOULDERS ITCHY SCALP [Suspect]
     Active Substance: PYRITHIONE ZINC
     Indication: DANDRUFF
     Dates: start: 20160130, end: 20160131

REACTIONS (3)
  - Eye swelling [None]
  - Eye pruritus [None]
  - Urticaria [None]

NARRATIVE: CASE EVENT DATE: 20160131
